FAERS Safety Report 18920514 (Version 2)
Quarter: 2021Q1

REPORT INFORMATION
  Report Type: Report from Study
  Country: US (occurrence: US)
  Receive Date: 20210222
  Receipt Date: 20210224
  Transmission Date: 20210420
  Serious: Yes (Hospitalization, Other)
  Sender: FDA-Public Use
  Company Number: US-GILEAD-2021-0517683

PATIENT
  Age: 77 Year
  Sex: Female

DRUGS (4)
  1. TADALAFIL. [Concomitant]
     Active Substance: TADALAFIL
  2. NIFEDIPINE. [Concomitant]
     Active Substance: NIFEDIPINE
  3. AMBRISENTAN [Suspect]
     Active Substance: AMBRISENTAN
     Indication: PULMONARY ARTERIAL HYPERTENSION
     Dosage: 10 MG, QD
     Route: 048
     Dates: start: 20160617
  4. ADCIRCA [Concomitant]
     Active Substance: TADALAFIL

REACTIONS (2)
  - Oral surgery [Unknown]
  - Neoplasm malignant [Unknown]
